FAERS Safety Report 8460012-8 (Version None)
Quarter: 2012Q2

REPORT INFORMATION
  Report Type: 
  Country: None (occurrence: None)
  Receive Date: 20120622
  Receipt Date: 20120606
  Transmission Date: 20120825
  Serious: Yes (Hospitalization, Other)
  Sender: FDA-Public Use
  Company Number: CHPA2012US012522

PATIENT
  Sex: Female

DRUGS (1)
  1. IBUPROFEN [Suspect]
     Dosage: UNK DF, UNK
     Route: 065

REACTIONS (12)
  - GASTRIC ULCER [None]
  - URINARY TRACT INFECTION [None]
  - SENSATION OF FOREIGN BODY [None]
  - BACK PAIN [None]
  - CYSTITIS [None]
  - CHEST DISCOMFORT [None]
  - DYSGEUSIA [None]
  - THYROID DISORDER [None]
  - URINARY HESITATION [None]
  - URINARY RETENTION [None]
  - HYPOAESTHESIA [None]
  - DYSURIA [None]
